FAERS Safety Report 17552690 (Version 2)
Quarter: 2020Q3

REPORT INFORMATION
  Report Type: Report from Study
  Country: DE (occurrence: DE)
  Receive Date: 20200317
  Receipt Date: 20200723
  Transmission Date: 20201102
  Serious: Yes (Hospitalization, Other)
  Sender: FDA-Public Use
  Company Number: PHHY2015DE065309

PATIENT
  Age: 47 Year
  Sex: Female
  Weight: 83 kg

DRUGS (1)
  1. GILENYA [Suspect]
     Active Substance: FINGOLIMOD HYDROCHLORIDE
     Indication: MULTIPLE SCLEROSIS
     Dosage: 0.5 MG, QD
     Route: 048
     Dates: start: 20141014

REACTIONS (12)
  - Syncope [Recovered/Resolved]
  - Goitre [Recovered/Resolved]
  - Influenza like illness [Not Recovered/Not Resolved]
  - Goitre [Recovered/Resolved]
  - Muscular weakness [Unknown]
  - Dizziness [Recovered/Resolved]
  - Nasopharyngitis [Recovered/Resolved]
  - Hand-foot-and-mouth disease [Recovered/Resolved]
  - Bone contusion [Recovered/Resolved]
  - Multiple sclerosis [Recovered/Resolved with Sequelae]
  - Carpal tunnel syndrome [Not Recovered/Not Resolved]
  - Facial bones fracture [Recovered/Resolved]

NARRATIVE: CASE EVENT DATE: 20141022
